FAERS Safety Report 6466668-3 (Version None)
Quarter: 2009Q4

REPORT INFORMATION
  Report Type: 
  Country: None (occurrence: None)
  Receive Date: 20091118
  Receipt Date: 20090821
  Transmission Date: 20100525
  Serious: Yes (Hospitalization)
  Sender: FDA-Public Use
  Company Number: 2009BI023021

PATIENT
  Age: 50 Year
  Sex: Male
  Weight: 95.1193 kg

DRUGS (2)
  1. TYSABRI [Suspect]
     Indication: MULTIPLE SCLEROSIS
     Dosage: 300 MG; QM; IV
     Route: 042
     Dates: start: 20071001, end: 20090201
  2. COPAXONE [Concomitant]

REACTIONS (3)
  - BACK PAIN [None]
  - BLOOD UREA INCREASED [None]
  - HAEMATOCRIT DECREASED [None]
